FAERS Safety Report 6635892 (Version 3)
Quarter: 2023Q2

REPORT INFORMATION
  Report Type: Report from Study
  Country: US (occurrence: US)
  Receive Date: 20080508
  Receipt Date: 20230422
  Transmission Date: 20230722
  Serious: Yes (Hospitalization, Other)
  Sender: FDA-Public Use
  Company Number: None

PATIENT
  Age: 0 Year
  Sex: Male

DRUGS (48)
  1. ADVATE [Suspect]
     Active Substance: ANTIHEMOPHILIC FACTOR, HUMAN RECOMBINANT
     Indication: Factor VIII deficiency
     Dosage: 3600 INTERNATIONAL UNIT
     Route: 042
  2. ADVATE [Suspect]
     Active Substance: ANTIHEMOPHILIC FACTOR, HUMAN RECOMBINANT
     Indication: Factor VIII deficiency
     Dosage: 3600 INTERNATIONAL UNIT
     Route: 042
  3. ADVATE [Suspect]
     Active Substance: ANTIHEMOPHILIC FACTOR, HUMAN RECOMBINANT
     Indication: Factor VIII deficiency
     Dosage: 3600 INTERNATIONAL UNIT
     Route: 042
  4. ADVATE [Suspect]
     Active Substance: ANTIHEMOPHILIC FACTOR, HUMAN RECOMBINANT
     Indication: Prophylaxis
     Dosage: 50 INTERNATIONAL UNIT/KILOGRAM, BID
     Route: 042
     Dates: start: 20051103
  5. ADVATE [Suspect]
     Active Substance: ANTIHEMOPHILIC FACTOR, HUMAN RECOMBINANT
     Indication: Prophylaxis
     Dosage: 50 INTERNATIONAL UNIT/KILOGRAM, BID
     Route: 042
     Dates: start: 20051103
  6. ADVATE [Suspect]
     Active Substance: ANTIHEMOPHILIC FACTOR, HUMAN RECOMBINANT
     Indication: Prophylaxis
     Dosage: 50 INTERNATIONAL UNIT/KILOGRAM, BID
     Route: 042
     Dates: start: 20051103
  7. ADVATE [Suspect]
     Active Substance: ANTIHEMOPHILIC FACTOR, HUMAN RECOMBINANT
     Dosage: 50 INTERNATIONAL UNIT/KILOGRAM, TID
     Route: 042
     Dates: start: 200511
  8. ADVATE [Suspect]
     Active Substance: ANTIHEMOPHILIC FACTOR, HUMAN RECOMBINANT
     Dosage: 50 INTERNATIONAL UNIT/KILOGRAM, TID
     Route: 042
     Dates: start: 200511
  9. ADVATE [Suspect]
     Active Substance: ANTIHEMOPHILIC FACTOR, HUMAN RECOMBINANT
     Dosage: 50 INTERNATIONAL UNIT/KILOGRAM, TID
     Route: 042
     Dates: start: 200511
  10. ADVATE [Suspect]
     Active Substance: ANTIHEMOPHILIC FACTOR, HUMAN RECOMBINANT
     Dosage: 50 INTERNATIONAL UNIT/KILOGRAM, 1/WEEK
     Route: 042
     Dates: start: 200511
  11. ADVATE [Suspect]
     Active Substance: ANTIHEMOPHILIC FACTOR, HUMAN RECOMBINANT
     Dosage: 50 INTERNATIONAL UNIT/KILOGRAM, 1/WEEK
     Route: 042
     Dates: start: 200511
  12. ADVATE [Suspect]
     Active Substance: ANTIHEMOPHILIC FACTOR, HUMAN RECOMBINANT
     Dosage: 50 INTERNATIONAL UNIT/KILOGRAM, 1/WEEK
     Route: 042
     Dates: start: 200511
  13. ADVATE [Suspect]
     Active Substance: ANTIHEMOPHILIC FACTOR, HUMAN RECOMBINANT
     Dosage: 100 INTERNATIONAL UNIT/KILOGRAM, 1/WEEK
     Route: 042
     Dates: start: 200511
  14. ADVATE [Suspect]
     Active Substance: ANTIHEMOPHILIC FACTOR, HUMAN RECOMBINANT
     Dosage: 100 INTERNATIONAL UNIT/KILOGRAM, 1/WEEK
     Route: 042
     Dates: start: 200511
  15. ADVATE [Suspect]
     Active Substance: ANTIHEMOPHILIC FACTOR, HUMAN RECOMBINANT
     Dosage: 100 INTERNATIONAL UNIT/KILOGRAM, 1/WEEK
     Route: 042
     Dates: start: 200511
  16. ADVATE [Suspect]
     Active Substance: ANTIHEMOPHILIC FACTOR, HUMAN RECOMBINANT
     Dosage: 100 INTERNATIONAL UNIT/KILOGRAM, 1/WEEK
     Route: 042
     Dates: start: 20051205
  17. ADVATE [Suspect]
     Active Substance: ANTIHEMOPHILIC FACTOR, HUMAN RECOMBINANT
     Dosage: 100 INTERNATIONAL UNIT/KILOGRAM, 1/WEEK
     Route: 042
     Dates: start: 20051205
  18. ADVATE [Suspect]
     Active Substance: ANTIHEMOPHILIC FACTOR, HUMAN RECOMBINANT
     Dosage: 100 INTERNATIONAL UNIT/KILOGRAM, 1/WEEK
     Route: 042
     Dates: start: 20051205
  19. ADVATE [Suspect]
     Active Substance: ANTIHEMOPHILIC FACTOR, HUMAN RECOMBINANT
     Dosage: 200 INTERNATIONAL UNIT/KILOGRAM, BID
     Route: 042
     Dates: start: 20051205
  20. ADVATE [Suspect]
     Active Substance: ANTIHEMOPHILIC FACTOR, HUMAN RECOMBINANT
     Dosage: 200 INTERNATIONAL UNIT/KILOGRAM, BID
     Route: 042
     Dates: start: 20051205
  21. ADVATE [Suspect]
     Active Substance: ANTIHEMOPHILIC FACTOR, HUMAN RECOMBINANT
     Dosage: 200 INTERNATIONAL UNIT/KILOGRAM, BID
     Route: 042
     Dates: start: 20051205
  22. ADVATE [Suspect]
     Active Substance: ANTIHEMOPHILIC FACTOR, HUMAN RECOMBINANT
     Dosage: 499 INTERNATIONAL UNIT/KILOGRAM, BID
     Route: 042
     Dates: start: 20051219, end: 20051219
  23. ADVATE [Suspect]
     Active Substance: ANTIHEMOPHILIC FACTOR, HUMAN RECOMBINANT
     Dosage: 499 INTERNATIONAL UNIT/KILOGRAM, BID
     Route: 042
     Dates: start: 20051219, end: 20051219
  24. ADVATE [Suspect]
     Active Substance: ANTIHEMOPHILIC FACTOR, HUMAN RECOMBINANT
     Dosage: 499 INTERNATIONAL UNIT/KILOGRAM, BID
     Route: 042
     Dates: start: 20051219, end: 20051219
  25. ADVATE [Suspect]
     Active Substance: ANTIHEMOPHILIC FACTOR, HUMAN RECOMBINANT
     Dosage: 944 INTERNATIONAL UNIT/KILOGRAM, QD
     Route: 042
     Dates: start: 20051225, end: 20051225
  26. ADVATE [Suspect]
     Active Substance: ANTIHEMOPHILIC FACTOR, HUMAN RECOMBINANT
     Dosage: 944 INTERNATIONAL UNIT/KILOGRAM, QD
     Route: 042
     Dates: start: 20051225, end: 20051225
  27. ADVATE [Suspect]
     Active Substance: ANTIHEMOPHILIC FACTOR, HUMAN RECOMBINANT
     Dosage: 944 INTERNATIONAL UNIT/KILOGRAM, QD
     Route: 042
     Dates: start: 20051225, end: 20051225
  28. ADVATE [Suspect]
     Active Substance: ANTIHEMOPHILIC FACTOR, HUMAN RECOMBINANT
     Dosage: 944 INTERNATIONAL UNIT/KILOGRAM, BID
     Route: 042
     Dates: start: 20051229
  29. ADVATE [Suspect]
     Active Substance: ANTIHEMOPHILIC FACTOR, HUMAN RECOMBINANT
     Dosage: 944 INTERNATIONAL UNIT/KILOGRAM, BID
     Route: 042
     Dates: start: 20051229
  30. ADVATE [Suspect]
     Active Substance: ANTIHEMOPHILIC FACTOR, HUMAN RECOMBINANT
     Dosage: 944 INTERNATIONAL UNIT/KILOGRAM, BID
     Route: 042
     Dates: start: 20051229
  31. ADVATE [Suspect]
     Active Substance: ANTIHEMOPHILIC FACTOR, HUMAN RECOMBINANT
     Dosage: 180 INTERNATIONAL UNIT/KILOGRAM, QD
     Route: 042
     Dates: start: 20060501, end: 20060501
  32. ADVATE [Suspect]
     Active Substance: ANTIHEMOPHILIC FACTOR, HUMAN RECOMBINANT
     Dosage: 180 INTERNATIONAL UNIT/KILOGRAM, QD
     Route: 042
     Dates: start: 20060501, end: 20060501
  33. ADVATE [Suspect]
     Active Substance: ANTIHEMOPHILIC FACTOR, HUMAN RECOMBINANT
     Dosage: 180 INTERNATIONAL UNIT/KILOGRAM, QD
     Route: 042
     Dates: start: 20060501, end: 20060501
  34. ADVATE [Suspect]
     Active Substance: ANTIHEMOPHILIC FACTOR, HUMAN RECOMBINANT
     Dosage: 200 INTERNATIONAL UNIT/KILOGRAM, QD
     Route: 042
     Dates: start: 20060925, end: 20060925
  35. ADVATE [Suspect]
     Active Substance: ANTIHEMOPHILIC FACTOR, HUMAN RECOMBINANT
     Dosage: 200 INTERNATIONAL UNIT/KILOGRAM, QD
     Route: 042
     Dates: start: 20060925, end: 20060925
  36. ADVATE [Suspect]
     Active Substance: ANTIHEMOPHILIC FACTOR, HUMAN RECOMBINANT
     Dosage: 200 INTERNATIONAL UNIT/KILOGRAM, QD
     Route: 042
     Dates: start: 20060925, end: 20060925
  37. ADVATE [Suspect]
     Active Substance: ANTIHEMOPHILIC FACTOR, HUMAN RECOMBINANT
     Dosage: 150 INTERNATIONAL UNIT/KILOGRAM, QD
     Route: 042
     Dates: start: 20070129, end: 20070129
  38. ADVATE [Suspect]
     Active Substance: ANTIHEMOPHILIC FACTOR, HUMAN RECOMBINANT
     Dosage: 150 INTERNATIONAL UNIT/KILOGRAM, QD
     Route: 042
     Dates: start: 20070129, end: 20070129
  39. ADVATE [Suspect]
     Active Substance: ANTIHEMOPHILIC FACTOR, HUMAN RECOMBINANT
     Dosage: 150 INTERNATIONAL UNIT/KILOGRAM, QD
     Route: 042
     Dates: start: 20070129, end: 20070129
  40. ADVATE [Suspect]
     Active Substance: ANTIHEMOPHILIC FACTOR, HUMAN RECOMBINANT
     Dosage: 145 INTERNATIONAL UNIT/KILOGRAM, QD
     Route: 042
     Dates: start: 20070521, end: 20070521
  41. ADVATE [Suspect]
     Active Substance: ANTIHEMOPHILIC FACTOR, HUMAN RECOMBINANT
     Dosage: 145 INTERNATIONAL UNIT/KILOGRAM, QD
     Route: 042
     Dates: start: 20070521, end: 20070521
  42. ADVATE [Suspect]
     Active Substance: ANTIHEMOPHILIC FACTOR, HUMAN RECOMBINANT
     Dosage: 145 INTERNATIONAL UNIT/KILOGRAM, QD
     Route: 042
     Dates: start: 20070521, end: 20070521
  43. ADVATE [Suspect]
     Active Substance: ANTIHEMOPHILIC FACTOR, HUMAN RECOMBINANT
     Dosage: 150 INTERNATIONAL UNIT/KILOGRAM, QD
     Route: 042
     Dates: start: 20071016, end: 20071016
  44. ADVATE [Suspect]
     Active Substance: ANTIHEMOPHILIC FACTOR, HUMAN RECOMBINANT
     Dosage: 150 INTERNATIONAL UNIT/KILOGRAM, QD
     Route: 042
     Dates: start: 20071016, end: 20071016
  45. ADVATE [Suspect]
     Active Substance: ANTIHEMOPHILIC FACTOR, HUMAN RECOMBINANT
     Dosage: 150 INTERNATIONAL UNIT/KILOGRAM, QD
     Route: 042
     Dates: start: 20071016, end: 20071016
  46. ADVATE [Suspect]
     Active Substance: ANTIHEMOPHILIC FACTOR, HUMAN RECOMBINANT
     Dosage: 150 INTERNATIONAL UNIT/KILOGRAM, QD
     Route: 042
     Dates: start: 20071112
  47. ADVATE [Suspect]
     Active Substance: ANTIHEMOPHILIC FACTOR, HUMAN RECOMBINANT
     Dosage: 150 INTERNATIONAL UNIT/KILOGRAM, QD
     Route: 042
     Dates: start: 20071112
  48. ADVATE [Suspect]
     Active Substance: ANTIHEMOPHILIC FACTOR, HUMAN RECOMBINANT
     Dosage: 150 INTERNATIONAL UNIT/KILOGRAM, QD
     Route: 042
     Dates: start: 20071112

REACTIONS (8)
  - Peripheral swelling [Unknown]
  - Injection site swelling [Unknown]
  - Haemarthrosis [Unknown]
  - Vascular device infection [Unknown]
  - Activated partial thromboplastin time shortened [Recovered/Resolved]
  - Muscle rupture [Unknown]
  - Factor VIII inhibition [Not Recovered/Not Resolved]
  - Gastroenteritis viral [Unknown]

NARRATIVE: CASE EVENT DATE: 20051101
